FAERS Safety Report 24391766 (Version 1)
Quarter: 2024Q4

REPORT INFORMATION
  Report Type: Spontaneous
  Country: BR (occurrence: BR)
  Receive Date: 20241003
  Receipt Date: 20241003
  Transmission Date: 20250114
  Serious: Yes (Life-Threatening, Other)
  Sender: NOVARTIS
  Company Number: BR-002147023-NVSC2024BR191110

PATIENT
  Sex: Female

DRUGS (1)
  1. VOTRIENT [Suspect]
     Active Substance: PAZOPANIB HYDROCHLORIDE
     Indication: Renal neoplasm
     Dosage: 400 MG
     Route: 065

REACTIONS (13)
  - Feeling abnormal [Unknown]
  - Product availability issue [Unknown]
  - Pancreatic neuroendocrine tumour [Unknown]
  - Blood glucose decreased [Unknown]
  - Oesophagitis [Unknown]
  - Renal mass [Unknown]
  - Osteitis [Unknown]
  - Arteriosclerosis [Unknown]
  - Hepatic steatosis [Unknown]
  - Renal cyst [Unknown]
  - Spinal osteoarthritis [Unknown]
  - Lymphadenopathy [Unknown]
  - General physical health deterioration [Unknown]
